FAERS Safety Report 7013593-5 (Version None)
Quarter: 2010Q3

REPORT INFORMATION
  Report Type: 
  Country: None (occurrence: None)
  Receive Date: 20100924
  Receipt Date: 20100915
  Transmission Date: 20110219
  Serious: Yes (Hospitalization)
  Sender: FDA-Public Use
  Company Number: GXKR2010ES10514

PATIENT
  Age: 82 Year
  Sex: Female

DRUGS (2)
  1. SPIRONOLACTONE [Suspect]
     Dosage: 100 MG/DAY
     Route: 065
  2. ACE INHIBITOR NOS [Concomitant]

REACTIONS (3)
  - ASTHENIA [None]
  - DEHYDRATION [None]
  - HYPERKALAEMIA [None]
